FAERS Safety Report 8524198-9 (Version None)
Quarter: 2012Q2

REPORT INFORMATION
  Report Type: 
  Country: None (occurrence: None)
  Receive Date: 20120406
  Receipt Date: 20110901
  Transmission Date: 20120825
  Serious: Yes (Hospitalization, Other)
  Sender: FDA-Public Use
  Company Number: US-CYPR-2010-000012

PATIENT
  Sex: Male
  Weight: 122 kg

DRUGS (17)
  1. COZAAR [Concomitant]
  2. VITAMIN D [Concomitant]
  3. ISOSORBIDE MONONITRATE [Concomitant]
  4. ATORVASTATIN [Concomitant]
  5. FISH OIL [Concomitant]
  6. ASPIRIN [Suspect]
     Indication: CORONARY ARTERY DISEASE
     Dosage: (81 MG QD ORAL), (325 MG QD ORAL)
     Route: 048
     Dates: start: 20101218
  7. ASPIRIN [Suspect]
     Indication: CORONARY ARTERY DISEASE
     Dosage: (81 MG QD ORAL), (325 MG QD ORAL)
     Route: 048
     Dates: start: 20090922, end: 20101217
  8. GABAPENTIN [Concomitant]
  9. METFORMIN HYDROCHLORIDE [Concomitant]
  10. PREVACID [Concomitant]
  11. FEXOFENADINE [Concomitant]
  12. CLOPIDOGREL [Suspect]
     Indication: ANTIPLATELET THERAPY
     Dosage: (75 MG QD ORAL)
     Route: 048
     Dates: start: 20100914, end: 20101216
  13. NOVOLIN 70/30 [Concomitant]
  14. CALCIUM CARBONATE [Concomitant]
  15. TRICOR [Concomitant]
  16. CARVEDILOL [Concomitant]
  17. CYPHER STENT [Concomitant]

REACTIONS (1)
  - CORONARY ARTERY DISEASE [None]
